FAERS Safety Report 6239939-3 (Version None)
Quarter: 2009Q2

REPORT INFORMATION
  Report Type: 
  Country: None (occurrence: None)
  Receive Date: 20090623
  Receipt Date: 20090616
  Transmission Date: 20091009
  Serious: Yes (Hospitalization)
  Sender: FDA-Public Use
  Company Number: US-BAYER-200923913NA

PATIENT
  Age: 26 Year
  Sex: Female

DRUGS (1)
  1. MIRENA [Suspect]
     Indication: DRUG USE FOR UNKNOWN INDICATION
     Route: 015
     Dates: start: 20090402, end: 20090508

REACTIONS (4)
  - CEREBRAL THROMBOSIS [None]
  - EAR PAIN [None]
  - HEADACHE [None]
  - PULMONARY EMBOLISM [None]
